FAERS Safety Report 4339114-3 (Version None)
Quarter: 2004Q2

REPORT INFORMATION
  Report Type: 
  Country: None (occurrence: None)
  Receive Date: 20040412
  Receipt Date: 20040401
  Transmission Date: 20050107
  Serious: Yes (Hospitalization)
  Sender: FDA-Public Use
  Company Number: SEWYE679501APR04

PATIENT
  Age: 84 Year
  Sex: Male

DRUGS (3)
  1. EFFEXOR [Suspect]
     Indication: PSYCHOTIC DISORDER
     Dosage: 150 MG 1X PER 1 DAY
     Route: 048
  2. LITHIONIT (LITHIUM SULFATE, ,0) [Suspect]
     Indication: PSYCHOTIC DISORDER
     Dosage: 42 MG 1X PER 1 DAY
     Route: 048
     Dates: end: 20040123
  3. RISPERDAL [Suspect]
     Indication: PSYCHOTIC DISORDER
     Dosage: 1 MG 1X PER 1 DAY
     Route: 048

REACTIONS (6)
  - ANTIPSYCHOTIC DRUG LEVEL ABOVE THERAPEUTIC [None]
  - BLOOD CALCIUM INCREASED [None]
  - BUNDLE BRANCH BLOCK LEFT [None]
  - BUNDLE BRANCH BLOCK RIGHT [None]
  - CONFUSIONAL STATE [None]
  - URINE OUTPUT INCREASED [None]
